FAERS Safety Report 5105071-5 (Version None)
Quarter: 2006Q3

REPORT INFORMATION
  Report Type: 
  Country: None (occurrence: None)
  Receive Date: 20060911
  Receipt Date: 20060811
  Transmission Date: 20061208
  Serious: Yes (Hospitalization)
  Sender: FDA-Public Use
  Company Number: 2006BI011363

PATIENT
  Age: 56 Year
  Sex: Female
  Weight: 78.0187 kg

DRUGS (1)
  1. AVONEX [Suspect]
     Indication: MULTIPLE SCLEROSIS
     Dosage: 30 UG;QW;IM
     Route: 030
     Dates: start: 20040901, end: 20050901

REACTIONS (3)
  - BRADYCARDIA [None]
  - DERMATITIS CONTACT [None]
  - LATEX ALLERGY [None]
